FAERS Safety Report 8087327-X (Version None)
Quarter: 2012Q1

REPORT INFORMATION
  Report Type: 
  Country: None (occurrence: None)
  Receive Date: 20120128
  Receipt Date: 20110510
  Transmission Date: 20120608
  Serious: No
  Sender: FDA-Public Use
  Company Number: US-ABBOTT-11P-163-0720721-00

PATIENT
  Sex: Female
  Weight: 87.168 kg

DRUGS (4)
  1. FOLIC ACID [Concomitant]
     Indication: PRODUCT USED FOR UNKNOWN INDICATION
  2. CRESTOR [Concomitant]
     Indication: BLOOD CHOLESTEROL
  3. METHOTREXATE [Concomitant]
     Indication: PSORIASIS
  4. HUMIRA [Suspect]
     Indication: PSORIASIS
     Dates: start: 20100801

REACTIONS (8)
  - NEEDLE ISSUE [None]
  - INJECTION SITE PAIN [None]
  - PAIN [None]
  - INGROWING NAIL [None]
  - PAIN IN EXTREMITY [None]
  - DEVICE MALFUNCTION [None]
  - INJECTION SITE PAPULE [None]
  - NAIL DISORDER [None]
